FAERS Safety Report 8400718-X (Version None)
Quarter: 2012Q2

REPORT INFORMATION
  Report Type: 
  Country: None (occurrence: None)
  Receive Date: 20120531
  Receipt Date: 20120524
  Transmission Date: 20120825
  Serious: Yes (Hospitalization, Disabling, Other)
  Sender: FDA-Public Use
  Company Number: US-MERCK-1203USA03302

PATIENT
  Age: 56 Year
  Sex: Female

DRUGS (9)
  1. ALENDRONATE SODIUM [Suspect]
     Indication: OSTEOPENIA
     Route: 048
     Dates: start: 20100401
  2. NEXIUM [Concomitant]
     Route: 065
  3. FOSAMAX PLUS D [Suspect]
     Indication: OSTEOPOROSIS
     Route: 048
     Dates: start: 20060101, end: 20070101
  4. FOSAMAX [Suspect]
     Indication: OSTEOPENIA
     Route: 048
     Dates: start: 20060401
  5. FOSAMAX PLUS D [Suspect]
     Indication: OSTEOPENIA
     Route: 048
     Dates: start: 20060101, end: 20070101
  6. ALENDRONATE SODIUM [Suspect]
     Indication: OSTEOPOROSIS
     Route: 048
     Dates: start: 20100401
  7. FOSAMAX [Suspect]
     Indication: OSTEOPOROSIS
     Route: 048
     Dates: start: 20060401
  8. DEPO-MEDROL [Concomitant]
     Route: 065
  9. HORMONES (UNSPECIFIED) [Concomitant]
     Route: 065
     Dates: start: 19770101

REACTIONS (33)
  - IRRITABLE BOWEL SYNDROME [None]
  - FRACTURE DELAYED UNION [None]
  - TOOTHACHE [None]
  - CHEST PAIN [None]
  - OSTEOPOROSIS [None]
  - STEROID THERAPY [None]
  - ODYNOPHAGIA [None]
  - INSOMNIA [None]
  - BONE DISORDER [None]
  - TIBIA FRACTURE [None]
  - HEADACHE [None]
  - DYSPHAGIA [None]
  - DYSPNOEA [None]
  - BLADDER DISORDER [None]
  - ANKLE FRACTURE [None]
  - FEMUR FRACTURE [None]
  - PERIPHERAL VASCULAR DISORDER [None]
  - DYSPHONIA [None]
  - RENAL FAILURE CHRONIC [None]
  - MULTIPLE FRACTURES [None]
  - STRESS FRACTURE [None]
  - EXOSTOSIS [None]
  - ACUTE SINUSITIS [None]
  - CHRONIC TONSILLITIS [None]
  - APPENDIX DISORDER [None]
  - FIBULA FRACTURE [None]
  - PALPITATIONS [None]
  - DEVICE FAILURE [None]
  - CALCIUM DEFICIENCY [None]
  - MUSCLE SPASMS [None]
  - VITAMIN D DEFICIENCY [None]
  - VITAMIN B12 DEFICIENCY [None]
  - LOW TURNOVER OSTEOPATHY [None]
